FAERS Safety Report 15456425 (Version 1)
Quarter: 2018Q4

REPORT INFORMATION
  Report Type: Spontaneous
  Country: BE (occurrence: BE)
  Receive Date: 20181002
  Receipt Date: 20181002
  Transmission Date: 20190204
  Serious: Yes (Other)
  Sender: FDA-Public Use
  Company Number: PHHY2018BE111680

PATIENT
  Age: 66 Year
  Sex: Female

DRUGS (18)
  1. AMLOR [Concomitant]
     Active Substance: AMLODIPINE BESYLATE
     Indication: HYPERTENSION
     Dosage: UNK
     Route: 065
  2. BISOPROLOL [Concomitant]
     Active Substance: BISOPROLOL
     Indication: HYPERTENSION
     Dosage: UNK
     Route: 065
  3. IMODIUM [Concomitant]
     Active Substance: LOPERAMIDE HYDROCHLORIDE
     Indication: PRODUCT USED FOR UNKNOWN INDICATION
     Dosage: 1 OT, UNK
     Route: 065
  4. THIALASE [Concomitant]
     Indication: PRODUCT USED FOR UNKNOWN INDICATION
     Dosage: UNK
     Route: 065
  5. HALCION [Concomitant]
     Active Substance: TRIAZOLAM
     Indication: PRODUCT USED FOR UNKNOWN INDICATION
     Dosage: 0.25 MG, UNK
     Route: 065
  6. DICLOFENAC [Suspect]
     Active Substance: DICLOFENAC
     Indication: PAIN
     Dosage: UNK
     Route: 065
     Dates: start: 20180903, end: 20180909
  7. NEXAVAR [Suspect]
     Active Substance: SORAFENIB
     Indication: SALIVARY GLAND CANCER STAGE IV
     Dosage: 400 MG, QD
     Route: 065
     Dates: start: 20180102, end: 2018
  8. DIFLUCAN FORTE [Concomitant]
     Indication: PRODUCT USED FOR UNKNOWN INDICATION
     Dosage: 1 G, PRN
     Route: 065
  9. BRUFEN [Concomitant]
     Active Substance: IBUPROFEN
     Indication: PAIN
     Dosage: UNK
     Route: 065
  10. MOTILIUM [Concomitant]
     Active Substance: DOMPERIDONE
     Indication: PRODUCT USED FOR UNKNOWN INDICATION
     Dosage: UNK
     Route: 065
  11. NEXAVAR [Suspect]
     Active Substance: SORAFENIB
     Indication: METASTASES TO CENTRAL NERVOUS SYSTEM
     Dosage: 600 MG, QD
     Route: 065
     Dates: start: 20180312, end: 20180730
  12. NEXAVAR [Suspect]
     Active Substance: SORAFENIB
     Dosage: 600 MG, QD
     Route: 065
     Dates: start: 20180821
  13. NEXAVAR [Suspect]
     Active Substance: SORAFENIB
     Dosage: 600 MG, QD
     Route: 065
  14. TRADONAL [Concomitant]
     Active Substance: TRAMADOL HYDROCHLORIDE
     Indication: PAIN
     Dosage: UNK
     Route: 065
  15. VITAMINS NOS [Concomitant]
     Active Substance: VITAMINS
     Indication: PRODUCT USED FOR UNKNOWN INDICATION
     Dosage: 1 OT, QD
     Route: 065
  16. NEXAVAR [Suspect]
     Active Substance: SORAFENIB
     Indication: METASTASES TO LUNG
     Dosage: UNK UNK, QD
     Route: 065
     Dates: start: 20170620, end: 20170620
  17. NEXAVAR [Suspect]
     Active Substance: SORAFENIB
     Indication: METASTASES TO NECK
     Dosage: 400 MG, QD
     Route: 065
     Dates: start: 20170901
  18. OMEPRAZOLE. [Concomitant]
     Active Substance: OMEPRAZOLE
     Indication: PRODUCT USED FOR UNKNOWN INDICATION
     Dosage: 40 MG, QD
     Route: 065

REACTIONS (52)
  - Pyrexia [Recovered/Resolved]
  - Weight decreased [Recovered/Resolved]
  - Breast pain [Unknown]
  - Hypertension [Unknown]
  - Muscle spasms [Unknown]
  - Dyspnoea [Unknown]
  - Rash [Unknown]
  - Headache [Recovered/Resolved]
  - Pain in extremity [Recovered/Resolved]
  - Musculoskeletal pain [Unknown]
  - Vision blurred [Not Recovered/Not Resolved]
  - Hypertension [Recovered/Resolved]
  - Pain in extremity [Not Recovered/Not Resolved]
  - Poor quality sleep [Not Recovered/Not Resolved]
  - Faeces discoloured [Unknown]
  - Burning sensation [Not Recovered/Not Resolved]
  - Sleep disorder [Unknown]
  - Alopecia [Unknown]
  - Cow^s milk intolerance [Unknown]
  - Depressed mood [Unknown]
  - Peripheral swelling [Unknown]
  - Nasopharyngitis [Unknown]
  - Gastrointestinal pain [Unknown]
  - Decreased appetite [Not Recovered/Not Resolved]
  - Platelet count decreased [Unknown]
  - Mucosal inflammation [Recovering/Resolving]
  - Intestinal transit time abnormal [Not Recovered/Not Resolved]
  - Dry mouth [Unknown]
  - Off label use [Unknown]
  - Abdominal pain [Recovered/Resolved]
  - Erythema [Unknown]
  - Nausea [Recovered/Resolved]
  - Blister [Unknown]
  - Hypermetropia [Unknown]
  - Fatigue [Not Recovered/Not Resolved]
  - Erythema [Unknown]
  - Palmar-plantar erythrodysaesthesia syndrome [Not Recovered/Not Resolved]
  - Fall [Unknown]
  - Skin irritation [Unknown]
  - Hunger [Unknown]
  - Oral pain [Unknown]
  - Abdominal pain lower [Recovered/Resolved]
  - Diarrhoea [Recovered/Resolved]
  - Pain in extremity [Recovering/Resolving]
  - Back pain [Unknown]
  - Product use in unapproved indication [Unknown]
  - Tongue discomfort [Unknown]
  - Diarrhoea [Unknown]
  - Flatulence [Unknown]
  - Salivary gland cancer stage IV [Unknown]
  - Vomiting [Unknown]
  - Dyspepsia [Unknown]

NARRATIVE: CASE EVENT DATE: 20170625
